FAERS Safety Report 14917944 (Version 2)
Quarter: 2018Q4

REPORT INFORMATION
  Report Type: Spontaneous
  Country: FR (occurrence: FR)
  Receive Date: 20180521
  Receipt Date: 20181106
  Transmission Date: 20190204
  Serious: Yes (Other)
  Sender: FDA-Public Use
  Company Number: FR-MERCK KGAA-2048106

PATIENT
  Age: 51 Year
  Sex: Female

DRUGS (1)
  1. EUTHYROX [Suspect]
     Active Substance: LEVOTHYROXINE SODIUM
     Indication: POST PROCEDURAL HYPOTHYROIDISM

REACTIONS (18)
  - Arthralgia [None]
  - Impatience [None]
  - Mood swings [None]
  - Social avoidant behaviour [None]
  - Sleep disorder [None]
  - Myalgia [None]
  - Anger [None]
  - Fear [None]
  - Loss of consciousness [None]
  - Aggression [None]
  - Impaired driving ability [None]
  - Headache [None]
  - Anxiety [None]
  - Blood thyroid stimulating hormone decreased [Not Recovered/Not Resolved]
  - Fatigue [None]
  - Depression [None]
  - Emotional distress [None]
  - Syncope [None]

NARRATIVE: CASE EVENT DATE: 20170828
